FAERS Safety Report 9422355 (Version 1)
Quarter: 2013Q3

REPORT INFORMATION
  Report Type: Spontaneous
  Country: US (occurrence: None)
  Receive Date: 20130725
  Receipt Date: 20130725
  Transmission Date: 20140515
  Serious: Yes (Other)
  Sender: FDA-Public Use
  Company Number: None

PATIENT
  Sex: Female
  Weight: 98.88 kg

DRUGS (1)
  1. REMICADE [Suspect]
     Dosage: EVERY 8 WEEKS
     Route: 042
     Dates: start: 20120619

REACTIONS (3)
  - Dyspnoea [None]
  - Joint swelling [None]
  - Psoriasis [None]
